FAERS Safety Report 24148362 (Version 1)
Quarter: 2024Q3

REPORT INFORMATION
  Report Type: Spontaneous
  Country: US (occurrence: US)
  Receive Date: 20240729
  Receipt Date: 20240729
  Transmission Date: 20241016
  Serious: No
  Sender: FRESENIUS KABI
  Company Number: US-FreseniusKabi-FK202411563

PATIENT
  Age: 32 Year
  Sex: Female
  Weight: 83.46 kg

DRUGS (1)
  1. XYLOCAINE WITH EPINEPHRINE [Suspect]
     Active Substance: EPINEPHRINE BITARTRATE\LIDOCAINE HYDROCHLORIDE
     Indication: Local anaesthesia
     Dosage: FORM OF ADMINISTRATION: INJECTION?INJECTION RATE, 30-45 SECONDS FOR BOTH?ROUTE, UNDER SKIN (ID)?GIVE
     Dates: start: 20240712

REACTIONS (1)
  - Drug ineffective [Unknown]

NARRATIVE: CASE EVENT DATE: 20240712
